FAERS Safety Report 16952981 (Version 1)
Quarter: 2019Q4

REPORT INFORMATION
  Report Type: Spontaneous
  Country: US (occurrence: US)
  Receive Date: 20191023
  Receipt Date: 20191023
  Transmission Date: 20200122
  Serious: Yes (Other)
  Sender: FDA-Public Use
  Company Number: NVSC2019US009710

PATIENT
  Sex: Female

DRUGS (1)
  1. ENTRESTO [Suspect]
     Active Substance: SACUBITRIL\VALSARTAN
     Indication: PRODUCT USED FOR UNKNOWN INDICATION
     Dosage: 2 DF, QD (STARTED MORE THAN 2 YEARS AGO)
     Route: 065

REACTIONS (3)
  - Therapeutic product effect incomplete [Unknown]
  - Ejection fraction decreased [Unknown]
  - Cardiac failure congestive [Unknown]
